FAERS Safety Report 8619867-6 (Version None)
Quarter: 2012Q3

REPORT INFORMATION
  Report Type: 
  Country: None (occurrence: None)
  Receive Date: 20120824
  Receipt Date: 20120815
  Transmission Date: 20120928
  Serious: Yes (Other)
  Sender: FDA-Public Use
  Company Number: US-BAYER-2011-099210

PATIENT
  Age: 34 Year
  Sex: Female
  Weight: 79.365 kg

DRUGS (7)
  1. METFORMIN HCL [Concomitant]
  2. SYNTHROID [Concomitant]
  3. ZOLOFT [Concomitant]
  4. FESOTERODINE [Concomitant]
  5. MIRENA [Suspect]
     Indication: CONTRACEPTION
     Dosage: 20 MCG/24HR, CONT
     Route: 015
     Dates: start: 20101012, end: 20110908
  6. IRON SULFATETHIAMIN COMPOUND TAB [Concomitant]
  7. CALCIUM CARBONATE [Concomitant]

REACTIONS (5)
  - PREGNANCY WITH CONTRACEPTIVE DEVICE [None]
  - NAUSEA [None]
  - PLACENTA PRAEVIA HAEMORRHAGE [None]
  - MENSTRUATION IRREGULAR [None]
  - AMENORRHOEA [None]
